FAERS Safety Report 6935799-3 (Version None)
Quarter: 2010Q3

REPORT INFORMATION
  Report Type: 
  Country: None (occurrence: None)
  Receive Date: 20100823
  Receipt Date: 20100809
  Transmission Date: 20110219
  Serious: Yes (Hospitalization)
  Sender: FDA-Public Use
  Company Number: US-ELI_LILLY_AND_COMPANY-US201008004283

PATIENT
  Sex: Female

DRUGS (1)
  1. ZYPREXA [Suspect]
     Dosage: 2.5 MG, UNK
     Dates: start: 20100212

REACTIONS (1)
  - THYROIDECTOMY [None]
